FAERS Safety Report 8571971-7 (Version None)
Quarter: 2012Q3

REPORT INFORMATION
  Report Type: 
  Country: None (occurrence: None)
  Receive Date: 20120806
  Receipt Date: 20120727
  Transmission Date: 20120928
  Serious: No
  Sender: FDA-Public Use
  Company Number: US-B.I. PHARMACEUTICALS,INC./RIDGEFIELD-2012-BP-16994BP

PATIENT
  Sex: Female

DRUGS (12)
  1. SPIRIVA [Suspect]
     Indication: BRONCHITIS CHRONIC
     Dosage: 18 MCG
     Route: 055
     Dates: start: 20100701
  2. BENADRYL [Concomitant]
     Indication: HYPERSENSITIVITY
  3. RANITIDINE [Concomitant]
     Indication: GASTRIC DISORDER
  4. NEURONTIN [Concomitant]
     Indication: BACK PAIN
  5. PROAIR HFA [Concomitant]
     Indication: BRONCHITIS CHRONIC
  6. SEROQUEL [Concomitant]
     Indication: BIPOLAR DISORDER
  7. ALBUTEROL [Concomitant]
     Indication: BRONCHITIS CHRONIC
  8. CYMBALTA [Concomitant]
     Indication: DEPRESSION
  9. FOLIC ACID [Concomitant]
     Indication: SUPPLEMENTATION THERAPY
  10. IRON [Concomitant]
     Indication: SUPPLEMENTATION THERAPY
  11. LOVASTATIN [Concomitant]
     Indication: BLOOD CHOLESTEROL INCREASED
  12. TYLENOL W/ CODEINE NO. 3 [Concomitant]
     Indication: BACK PAIN

REACTIONS (5)
  - DIARRHOEA [None]
  - HYPERSENSITIVITY [None]
  - COUGH [None]
  - DYSPNOEA [None]
  - WHEEZING [None]
